FAERS Safety Report 11050987 (Version 1)
Quarter: 2015Q2

REPORT INFORMATION
  Report Type: Spontaneous
  Country: US (occurrence: None)
  Receive Date: 20150420
  Receipt Date: 20150420
  Transmission Date: 20150821
  Serious: Yes (Other)
  Sender: FDA-Public Use
  Company Number: None

PATIENT
  Age: 53 Year
  Sex: Female
  Weight: 88.45 kg

DRUGS (10)
  1. POTASSIUM [Concomitant]
     Active Substance: POTASSIUM
  2. XOLAIR [Suspect]
     Active Substance: OMALIZUMAB
     Indication: ASTHMA
  3. RELAFEN [Concomitant]
     Active Substance: NABUMETONE
  4. PRILOSEC [Concomitant]
     Active Substance: OMEPRAZOLE MAGNESIUM
  5. VIVELLE [Concomitant]
     Active Substance: ESTRADIOL
  6. LISINOPRIL. [Concomitant]
     Active Substance: LISINOPRIL
  7. SIMVASTATIN. [Concomitant]
     Active Substance: SIMVASTATIN
  8. TYLENOL EXTRA STRENGTH [Concomitant]
     Active Substance: ACETAMINOPHEN
  9. VITAMIN D3, VITAMIN B COMPLEX [Concomitant]
  10. LASIX [Concomitant]
     Active Substance: FUROSEMIDE

REACTIONS (10)
  - Presyncope [None]
  - Chest discomfort [None]
  - Hypotension [None]
  - Asthenia [None]
  - Blood pressure abnormal [None]
  - Tachycardia [None]
  - Pulmonary hypertension [None]
  - Throat tightness [None]
  - Anaphylactic reaction [None]
  - Costochondritis [None]

NARRATIVE: CASE EVENT DATE: 20150416
